FAERS Safety Report 4877683-5 (Version None)
Quarter: 2005Q4

REPORT INFORMATION
  Report Type: 
  Country: None (occurrence: None)
  Receive Date: 20051206
  Receipt Date: 20051011
  Transmission Date: 20060501
  Serious: No
  Sender: FDA-Public Use
  Company Number: USA0508106405

PATIENT
  Age: 48 Year
  Sex: Female

DRUGS (3)
  1. CYMBALTA [Suspect]
     Indication: MIGRAINE
     Dosage: 60 MG DAY
     Dates: start: 20050401
  2. NORTRIPTYLINE HCL [Concomitant]
  3. ZANAFLEX [Concomitant]

REACTIONS (3)
  - ARTHRALGIA [None]
  - FEELING ABNORMAL [None]
  - OEDEMA PERIPHERAL [None]
